FAERS Safety Report 5258250-0 (Version None)
Quarter: 2007Q1

REPORT INFORMATION
  Report Type: 
  Country: None (occurrence: None)
  Receive Date: 20070305
  Receipt Date: 20070226
  Transmission Date: 20070707
  Serious: Yes (Other)
  Sender: FDA-Public Use
  Company Number: 2006-06-2091

PATIENT
  Age: 65 Year
  Sex: Female

DRUGS (1)
  1. INTRON A [Suspect]
     Indication: ANGIOLYMPHOID HYPERPLASIA WITH EOSINOPHILIA
     Dosage: 9 MIU; /WK; SC
     Route: 058
     Dates: start: 20040920, end: 20051125

REACTIONS (3)
  - ACUTE RESPIRATORY FAILURE [None]
  - HYPERSENSITIVITY [None]
  - INTERSTITIAL LUNG DISEASE [None]
